FAERS Safety Report 9487253 (Version 1)
Quarter: 2013Q3

REPORT INFORMATION
  Report Type: Spontaneous
  Country: FR (occurrence: FR)
  Receive Date: 20130829
  Receipt Date: 20130829
  Transmission Date: 20140515
  Serious: Yes (Other)
  Sender: FDA-Public Use
  Company Number: FR-ASTRAZENECA-2013SE64863

PATIENT
  Age: 891 Month
  Sex: Female

DRUGS (3)
  1. BRILIQUE [Suspect]
     Indication: ANGINA PECTORIS
     Route: 048
     Dates: start: 20130220
  2. ATENOLOL [Concomitant]
  3. KARDEGIC [Concomitant]

REACTIONS (6)
  - Decreased appetite [Not Recovered/Not Resolved]
  - Sinusitis [Not Recovered/Not Resolved]
  - Haematoma [Not Recovered/Not Resolved]
  - Haemarthrosis [Not Recovered/Not Resolved]
  - Nausea [Not Recovered/Not Resolved]
  - Dizziness [Not Recovered/Not Resolved]
